FAERS Safety Report 5899755-9 (Version None)
Quarter: 2008Q3

REPORT INFORMATION
  Report Type: 
  Country: None (occurrence: None)
  Receive Date: 20080926
  Receipt Date: 20080916
  Transmission Date: 20090109
  Serious: Yes (Hospitalization)
  Sender: FDA-Public Use
  Company Number: US-BAYER-200833806NA

PATIENT
  Age: 15 Year
  Sex: Male
  Weight: 72 kg

DRUGS (60)
  1. CAMPATH [Suspect]
     Indication: RENAL TRANSPLANT
     Dosage: AS USED: 18.5 MG
     Route: 042
     Dates: start: 20050614, end: 20050614
  2. CAMPATH [Suspect]
     Dosage: AS USED: 18.5 MG
     Route: 042
     Dates: start: 20050616, end: 20050616
  3. ACETAMINOPHEN [Concomitant]
     Dates: start: 20050804, end: 20060131
  4. ACETAMINOPHEN [Concomitant]
     Dates: start: 20051117, end: 20051121
  5. AMLODIPINE [Concomitant]
     Dates: start: 20050726, end: 20051206
  6. CEFTRIAXONE [Concomitant]
     Dosage: TOTAL DAILY DOSE: 2 G
     Route: 042
     Dates: start: 20051117, end: 20051122
  7. CEFTRIAXONE [Concomitant]
     Dates: start: 20050812, end: 20050814
  8. CLOTRIMAZOLE [Concomitant]
     Dates: start: 20050616, end: 20060130
  9. DAPSONE [Concomitant]
     Dates: start: 20050619
  10. DIPHENHYDRAMINE HCL [Concomitant]
     Dates: start: 20050815, end: 20050824
  11. DOXERCALCIFEROL [Concomitant]
     Dates: start: 20051121, end: 20051121
  12. DOXERCALCIFEROL [Concomitant]
     Dates: start: 20050815, end: 20060201
  13. HEPARIN [Concomitant]
     Dates: start: 20050813, end: 20060126
  14. IMMUNE SERUM GLOBULIIN [Concomitant]
     Dates: start: 20050822, end: 20050824
  15. LIDOCAINE [Concomitant]
     Dates: start: 20050804, end: 20060509
  16. MAGNESIUM PROTEIN [Concomitant]
     Dates: start: 20050621, end: 20051206
  17. METOCLOPRAMIDE [Concomitant]
  18. PROGRAF [Concomitant]
     Dates: start: 20050620, end: 20060510
  19. NEPRO [Concomitant]
     Dates: start: 20060725
  20. NEPRO [Concomitant]
     Dates: start: 20050725
  21. ISRADIPINE [Concomitant]
     Dates: start: 20060503
  22. ENOXAPARIN SODIUM [Concomitant]
     Dates: start: 20060912
  23. HECTOROL [Concomitant]
     Dates: start: 20050927, end: 20060130
  24. HECTOROL [Concomitant]
     Dates: start: 20060221
  25. CODEINE SUL TAB [Concomitant]
     Dates: start: 20051121, end: 20051121
  26. LANSOPRAZOLE [Concomitant]
     Dates: start: 20051118, end: 20051214
  27. HEPARIN [Concomitant]
     Dates: start: 20060902, end: 20060901
  28. HEPARIN [Concomitant]
     Dates: start: 20050813, end: 20060126
  29. CALCIUM CARBONATE [Concomitant]
     Dates: start: 20051025, end: 20060221
  30. ENALAPRIL MALEATE [Concomitant]
     Dates: start: 20050918
  31. IRON POLYSACCHARIDE [Concomitant]
     Dates: start: 20051119, end: 20051121
  32. FERRIC GLUCONATE COMPLEX [Concomitant]
     Dates: start: 20051119, end: 20051121
  33. FERRIC GLUCONATE COMPLEX [Concomitant]
     Dates: start: 20060627
  34. ONDANSETRON [Concomitant]
     Dates: start: 20051117, end: 20051121
  35. NS BOLUS [Concomitant]
     Dates: start: 20051118, end: 20051120
  36. EPO [Concomitant]
     Dates: start: 20051119, end: 20051130
  37. MAALOX [Concomitant]
  38. EPOETIN [Concomitant]
  39. LOSARTAN [Concomitant]
  40. NEXIUM [Concomitant]
  41. VALGANCICLOVIR HCL [Concomitant]
  42. PREDNISONE [Concomitant]
  43. MYCOPHENOLATE MOFETIL [Concomitant]
     Dates: start: 20051121
  44. MYCOPHENOLATE MOFETIL [Concomitant]
  45. TACROLIMUS [Concomitant]
     Dates: start: 20060426, end: 20060510
  46. TACROLIMUS [Concomitant]
     Dates: start: 20050620, end: 20050623
  47. TACROLIMUS [Concomitant]
     Dates: start: 20051121
  48. FERROUS SULFATE TAB [Concomitant]
     Dates: start: 20060523
  49. DOCUSATE [Concomitant]
     Dates: start: 20060627
  50. DOCUSATE [Concomitant]
     Dates: start: 20060523
  51. IRON [Concomitant]
     Dates: start: 20060513
  52. RENAGEL [Concomitant]
     Dates: start: 20060426
  53. RENAGEL [Concomitant]
     Dates: start: 20060402
  54. PHOSLO [Concomitant]
     Dates: start: 20060321
  55. RENA-VITE [Concomitant]
     Dates: start: 20060221
  56. CYCLOSPORINE [Concomitant]
     Dates: end: 20051121
  57. CEFUROXIME [Concomitant]
     Indication: PYREXIA
     Dates: start: 20060908
  58. ZEMPLAR [Concomitant]
     Dates: start: 20060627
  59. ACYCLOVIR [Concomitant]
     Dates: start: 20060725
  60. COLACE [Concomitant]
     Dates: start: 20060725

REACTIONS (8)
  - ARTERIOVENOUS FISTULA OCCLUSION [None]
  - CATHETER PLACEMENT [None]
  - DIARRHOEA [None]
  - FOCAL SEGMENTAL GLOMERULOSCLEROSIS [None]
  - GASTROENTERITIS [None]
  - HYPOTENSION [None]
  - RENAL FAILURE [None]
  - THROMBOSIS [None]
